FAERS Safety Report 22846974 (Version 3)
Quarter: 2023Q4

REPORT INFORMATION
  Report Type: Report from Study
  Country: US (occurrence: US)
  Receive Date: 20230822
  Receipt Date: 20231110
  Transmission Date: 20240109
  Serious: No
  Sender: FDA-Public Use
  Company Number: US-002147023-NVSC2023US179041

PATIENT
  Sex: Male

DRUGS (1)
  1. ILARIS [Suspect]
     Active Substance: CANAKINUMAB
     Indication: Still^s disease
     Dosage: 50 MG, QMO
     Route: 058
     Dates: start: 20210624

REACTIONS (4)
  - Rash pruritic [Not Recovered/Not Resolved]
  - Skin hypertrophy [Unknown]
  - Mood altered [Unknown]
  - Eczema [Unknown]
